FAERS Safety Report 8569133-2 (Version None)
Quarter: 2012Q3

REPORT INFORMATION
  Report Type: 
  Country: None (occurrence: None)
  Receive Date: 20120803
  Receipt Date: 20120202
  Transmission Date: 20120928
  Serious: No
  Sender: FDA-Public Use
  Company Number: US-ABBOTT-12P-163-0900980-00

PATIENT
  Sex: Female
  Weight: 86.26 kg

DRUGS (1)
  1. NIASPAN [Suspect]
     Indication: ATHEROSCLEROSIS PROPHYLAXIS
     Dosage: AT BEDTIME
     Dates: start: 20120130

REACTIONS (2)
  - BURNING SENSATION [None]
  - PARAESTHESIA [None]
